FAERS Safety Report 25286006 (Version 1)
Quarter: 2025Q2

REPORT INFORMATION
  Report Type: Spontaneous
  Country: FR (occurrence: FR)
  Receive Date: 20250509
  Receipt Date: 20250509
  Transmission Date: 20250716
  Serious: Yes (Hospitalization, Other)
  Sender: SANDOZ
  Company Number: None

PATIENT
  Age: 59 Year
  Sex: Male
  Weight: 83.5 kg

DRUGS (4)
  1. CISATRACURIUM BESYLATE [Suspect]
     Active Substance: CISATRACURIUM BESYLATE
     Indication: Induction and maintenance of anaesthesia
     Route: 042
     Dates: start: 20250219, end: 20250219
  2. KETAMINE [Concomitant]
     Active Substance: KETAMINE
     Indication: Induction and maintenance of anaesthesia
     Route: 042
     Dates: start: 20250219, end: 20250219
  3. PROPOFOL [Concomitant]
     Active Substance: PROPOFOL
     Indication: Induction and maintenance of anaesthesia
     Route: 042
     Dates: start: 20250219, end: 20250219
  4. SUFENTANIL [Concomitant]
     Active Substance: SUFENTANIL
     Indication: Induction and maintenance of anaesthesia
     Route: 042
     Dates: start: 20250219, end: 20250219

REACTIONS (1)
  - Anaphylactic shock [Recovered/Resolved]

NARRATIVE: CASE EVENT DATE: 20250219
